FAERS Safety Report 5571879-5 (Version None)
Quarter: 2007Q4

REPORT INFORMATION
  Report Type: 
  Country: None (occurrence: None)
  Receive Date: 20071221
  Receipt Date: 20071211
  Transmission Date: 20080405
  Serious: Yes (Other)
  Sender: FDA-Public Use
  Company Number: US-RANBAXY-2007US-10078

PATIENT

DRUGS (1)
  1. ISOTRETINOIN [Suspect]
     Indication: DRUG USE FOR UNKNOWN INDICATION
     Dosage: 40 MG, BID EVEN DAYS, QD ODD DAYS
     Route: 048
     Dates: start: 20070503, end: 20070820

REACTIONS (4)
  - DRY MOUTH [None]
  - DRY SKIN [None]
  - LIP DRY [None]
  - PREGNANCY [None]
